FAERS Safety Report 22627844 (Version 1)
Quarter: 2023Q2

REPORT INFORMATION
  Report Type: Spontaneous
  Country: US (occurrence: US)
  Receive Date: 20230622
  Receipt Date: 20230622
  Transmission Date: 20230722
  Serious: Yes (Hospitalization)
  Sender: FDA-Public Use
  Company Number: US-BMS-IMIDS-REMS_SI-10238446

PATIENT
  Sex: Male

DRUGS (1)
  1. LENALIDOMIDE [Suspect]
     Active Substance: LENALIDOMIDE
     Indication: Product used for unknown indication
     Dosage: DISPENSED DATES 10MG: 26-JAN-2023, 17-FEB-23, 16-MAR-23
     Route: 048

REACTIONS (2)
  - Pneumonia [Unknown]
  - Diarrhoea [Unknown]
